FAERS Safety Report 17612604 (Version 2)
Quarter: 2021Q2

REPORT INFORMATION
  Report Type: Spontaneous
  Country: US (occurrence: US)
  Receive Date: 20200401
  Receipt Date: 20210622
  Transmission Date: 20210716
  Serious: Yes (Other)
  Sender: FDA-Public Use
  Company Number: US-VERTEX PHARMACEUTICALS-2020-002139

PATIENT
  Age: 59 Year
  Sex: Female

DRUGS (3)
  1. TRIKAFTA [Suspect]
     Active Substance: ELEXACAFTOR\IVACAFTOR\TEZACAFTOR
     Indication: CYSTIC FIBROSIS
     Dosage: 100MG ELEXACAFTOR/75MG TEZACAFTOR/50MG IVACAFTOR AND 150MG IVACAFTOR, BID
     Route: 048
     Dates: start: 201912
  2. TRIKAFTA [Suspect]
     Active Substance: ELEXACAFTOR\IVACAFTOR\TEZACAFTOR
     Dosage: ONE MORNING PILL AND ONE EVENING PILL
     Route: 048
     Dates: start: 202105
  3. TRIKAFTA [Suspect]
     Active Substance: ELEXACAFTOR\IVACAFTOR\TEZACAFTOR
     Dosage: WENT DOWN TO HALF AN EVENING PILL
     Route: 048
     Dates: start: 202106

REACTIONS (17)
  - Cataract operation [Recovered/Resolved]
  - Eye infection [Recovered/Resolved]
  - Paranasal sinus hyposecretion [Recovered/Resolved]
  - Abdominal discomfort [Recovered/Resolved]
  - Blood pressure increased [Not Recovered/Not Resolved]
  - Abdominal pain upper [Recovered/Resolved]
  - Dacryostenosis acquired [Not Recovered/Not Resolved]
  - Constipation [Recovered/Resolved]
  - Neck pain [Unknown]
  - Sinusitis [Recovered/Resolved]
  - Headache [Recovered/Resolved]
  - Vision blurred [Not Recovered/Not Resolved]
  - Diarrhoea [Not Recovered/Not Resolved]
  - Dry eye [Not Recovered/Not Resolved]
  - Eye pain [Recovered/Resolved]
  - Abdominal distension [Recovered/Resolved]
  - Fatigue [Recovered/Resolved]

NARRATIVE: CASE EVENT DATE: 20191231
